FAERS Safety Report 16825007 (Version 2)
Quarter: 2019Q4

REPORT INFORMATION
  Report Type: Spontaneous
  Country: US (occurrence: US)
  Receive Date: 20190919
  Receipt Date: 20191129
  Transmission Date: 20200122
  Serious: No
  Sender: FDA-Public Use
  Company Number: US-JNJFOC-20190922402

PATIENT
  Sex: Male
  Weight: 79.45 kg

DRUGS (10)
  1. ALLEGRA [Concomitant]
     Active Substance: FEXOFENADINE HYDROCHLORIDE
     Indication: MULTIPLE ALLERGIES
     Route: 065
  2. ZANAFLEX [Concomitant]
     Active Substance: TIZANIDINE HYDROCHLORIDE
     Indication: MUSCLE SPASMS
     Route: 048
     Dates: start: 2009
  3. ZANAFLEX [Concomitant]
     Active Substance: TIZANIDINE HYDROCHLORIDE
     Indication: MUSCLE RELAXANT THERAPY
  4. BENADRYL [Concomitant]
     Active Substance: DIPHENHYDRAMINE HYDROCHLORIDE
     Indication: MULTIPLE ALLERGIES
     Dosage: 2 TABLETS IN THE MORNING, 2 IN THE EVENING 2 BEFORE BED
     Route: 048
     Dates: start: 2017
  5. RHINOCORT [Concomitant]
     Active Substance: BUDESONIDE
     Indication: MULTIPLE ALLERGIES
     Dosage: 1 SPRAY EACH NOSTRIL IN THE MORNING AND EVENING ; 12 METERED SPRAY BOTTLE
     Route: 045
     Dates: start: 2009
  6. ALPRAZOLAM. [Concomitant]
     Active Substance: ALPRAZOLAM
     Indication: POST-TRAUMATIC STRESS DISORDER
  7. ZYRTEC [Suspect]
     Active Substance: CETIRIZINE HYDROCHLORIDE
     Indication: MULTIPLE ALLERGIES
     Route: 048
  8. BUDESONIDE. [Concomitant]
     Active Substance: BUDESONIDE
     Indication: ASTHMA
     Dosage: 1 SPRAY INHALED AS NEEDED; START: 5 TO 6 YEARS AGO; DOSE: MAYBE 80 MG
  9. RELPAX [Concomitant]
     Active Substance: ELETRIPTAN HYDROBROMIDE
     Indication: MIGRAINE
     Route: 048
     Dates: start: 2009
  10. ALPRAZOLAM. [Concomitant]
     Active Substance: ALPRAZOLAM
     Indication: PANIC ATTACK
     Dosage: START: SINCE AGE 21 YEARS
     Route: 048
     Dates: start: 1986

REACTIONS (1)
  - Drug ineffective [Unknown]
